FAERS Safety Report 10388805 (Version 1)
Quarter: 2014Q1

REPORT INFORMATION
  Report Type: Spontaneous
  Country: US (occurrence: None)
  Receive Date: 20140306
  Receipt Date: 20140306
  Transmission Date: 20141002
  Serious: Yes (Other)
  Sender: FDA-Public Use
  Company Number: 163-21880-13104216

PATIENT
  Age: 83 Year
  Sex: Male
  Weight: 64 kg

DRUGS (7)
  1. REVLIMID (LENALIDOMIDE)(10 MILLIGRAM, CAPSULES) [Suspect]
     Indication: PLASMA CELL MYELOMA
     Dosage: 21 IN 28 D, PO
     Route: 048
     Dates: start: 20110209
  2. SULFASALAZINE(SULFASALAZINE)(UNKNOWN) [Concomitant]
  3. ACYCLOVIR(ACICLOVIR)(UNKNOWN) [Concomitant]
  4. CEPHALEXIN(CEFALEXIN)(UNKNON [Concomitant]
  5. TRAMADOL HCL(TRAMADOL HYDROCHLORIDE)(UNKNOWN) [Concomitant]
  6. LOVASTATIN(LOVASTATIN)(UNKNOWN) [Concomitant]
  7. OMEPRAZOLE(OMEPRAZOLE)(UNKNOWN) [Concomitant]

REACTIONS (1)
  - Cerebrovascular accident [None]
